FAERS Safety Report 8871461 (Version 2)
Quarter: 2013Q2

REPORT INFORMATION
  Report Type: Spontaneous
  Country: US (occurrence: US)
  Receive Date: 20121023
  Receipt Date: 20130412
  Transmission Date: 20140414
  Serious: Yes (Other)
  Sender: FDA-Public Use
  Company Number: US-ASTELLAS-2012US009760

PATIENT
  Age: 53 Year
  Sex: Male
  Weight: 68 kg

DRUGS (2)
  1. PROGRAF [Suspect]
     Indication: LIVER TRANSPLANT
     Dosage: 2 MG, BID
     Route: 048
     Dates: start: 19990911
  2. HYDROCODONE [Concomitant]
     Indication: PAIN
     Dosage: UNK
     Route: 048

REACTIONS (1)
  - Squamous cell carcinoma of the oral cavity [Recovered/Resolved]
